FAERS Safety Report 15983991 (Version 5)
Quarter: 2019Q4

REPORT INFORMATION
  Report Type: Spontaneous
  Country: US (occurrence: US)
  Receive Date: 20190220
  Receipt Date: 20191101
  Transmission Date: 20200122
  Serious: No
  Sender: FDA-Public Use
  Company Number: US-BIOGEN-2019BI00696749

PATIENT
  Sex: Female

DRUGS (3)
  1. TECFIDERA [Suspect]
     Active Substance: DIMETHYL FUMARATE
     Indication: MULTIPLE SCLEROSIS
     Dosage: TAKE 1 CAPSULE BY MOUTH TWICE A DAY
     Route: 050
  2. TECFIDERA [Suspect]
     Active Substance: DIMETHYL FUMARATE
     Dates: start: 20190124
  3. TYLENOL [Concomitant]
     Active Substance: ACETAMINOPHEN
     Route: 065

REACTIONS (11)
  - Hot flush [Recovered/Resolved]
  - Back pain [Unknown]
  - Flushing [Unknown]
  - Diarrhoea [Unknown]
  - Fatigue [Unknown]
  - Pain in extremity [Unknown]
  - Headache [Unknown]
  - Pruritus [Not Recovered/Not Resolved]
  - Weight decreased [Unknown]
  - Erythema [Not Recovered/Not Resolved]
  - Rash [Unknown]
